FAERS Safety Report 6504607-7 (Version None)
Quarter: 2009Q4

REPORT INFORMATION
  Report Type: 
  Country: None (occurrence: None)
  Receive Date: 20091215
  Receipt Date: 20091204
  Transmission Date: 20100525
  Serious: Yes (Hospitalization)
  Sender: FDA-Public Use
  Company Number: 2009AC000488

PATIENT
  Sex: Male

DRUGS (21)
  1. DIGOXIN [Suspect]
     Dosage: 0.25 MG; PO
     Route: 048
  2. ALPHAGAN [Concomitant]
  3. GLYBURIDE [Concomitant]
  4. ACIPHEX [Concomitant]
  5. COREG [Concomitant]
  6. SIMVASTATIN [Concomitant]
  7. METFORMIN HCL [Concomitant]
  8. XALATAN [Concomitant]
  9. SPIRONOLACTONE [Concomitant]
  10. LISINOPRIL [Concomitant]
  11. FUROSEMIDE [Concomitant]
  12. ACETAZOLAMIDE [Concomitant]
  13. COSOPT [Concomitant]
  14. LASIX [Concomitant]
  15. ZOCOR [Concomitant]
  16. ALDACTONE [Concomitant]
  17. DIAMOX SRC [Concomitant]
  18. ASPIRIN [Concomitant]
  19. LANTUS [Concomitant]
  20. KAYEXALATE [Concomitant]
  21. BICITRA [Concomitant]

REACTIONS (5)
  - BLOOD POTASSIUM INCREASED [None]
  - DIABETES MELLITUS [None]
  - HYPERTENSION [None]
  - METABOLIC ACIDOSIS [None]
  - RENAL FAILURE CHRONIC [None]
